FAERS Safety Report 16972042 (Version 1)
Quarter: 2019Q4

REPORT INFORMATION
  Report Type: Spontaneous
  Country: CA (occurrence: CA)
  Receive Date: 20191029
  Receipt Date: 20191029
  Transmission Date: 20200122
  Serious: Yes (Other)
  Sender: FDA-Public Use
  Company Number: CA-ALLERGAN-1943083US

PATIENT
  Sex: Female
  Weight: 72.56 kg

DRUGS (1)
  1. VIBERZI [Suspect]
     Active Substance: ELUXADOLINE
     Indication: IRRITABLE BOWEL SYNDROME
     Dosage: 100 MG, BID

REACTIONS (3)
  - Musculoskeletal stiffness [Recovered/Resolved]
  - Throat tightness [Recovered/Resolved]
  - Muscle fatigue [Recovered/Resolved]
